FAERS Safety Report 7985567-9 (Version None)
Quarter: 2011Q4

REPORT INFORMATION
  Report Type: 
  Country: None (occurrence: None)
  Receive Date: 20111216
  Receipt Date: 20111212
  Transmission Date: 20120403
  Serious: Yes (Other)
  Sender: FDA-Public Use
  Company Number: US-PFIZER INC-2011272352

PATIENT
  Sex: Male

DRUGS (2)
  1. XALATAN [Suspect]
     Dosage: UNK
     Dates: end: 20111029
  2. XALATAN [Suspect]
     Dosage: UNK
     Dates: start: 20111106, end: 20111106

REACTIONS (3)
  - EYE IRRITATION [None]
  - DISCOMFORT [None]
  - EYE PAIN [None]
